FAERS Safety Report 10407945 (Version 1)
Quarter: 2014Q3

REPORT INFORMATION
  Report Type: Spontaneous
  Country: BR (occurrence: BR)
  Receive Date: 20140825
  Receipt Date: 20140825
  Transmission Date: 20150326
  Serious: Yes (Hospitalization)
  Sender: FDA-Public Use
  Company Number: BR-ELI_LILLY_AND_COMPANY-BR201408006706

PATIENT
  Sex: Female
  Weight: 82 kg

DRUGS (7)
  1. HUMALOG [Suspect]
     Active Substance: INSULIN LISPRO
     Dosage: 14 IU, QD
     Route: 058
     Dates: start: 201202
  2. HUMULIN N [Suspect]
     Active Substance: INSULIN HUMAN
     Indication: TYPE 1 DIABETES MELLITUS
     Dosage: 20 IU, EACH MORNING
     Route: 058
     Dates: start: 201402
  3. HUMULIN N [Suspect]
     Active Substance: INSULIN HUMAN
     Dosage: 16 IU, QD
     Route: 058
     Dates: start: 201402
  4. HUMULIN N [Suspect]
     Active Substance: INSULIN HUMAN
     Dosage: 14 IU, EACH EVENING
     Route: 058
     Dates: start: 201402
  5. HUMALOG [Suspect]
     Active Substance: INSULIN LISPRO
     Indication: TYPE 1 DIABETES MELLITUS
     Dosage: 4 IU, EACH MORNING
     Route: 058
     Dates: start: 201202
  6. TOPIRAMATO [Concomitant]
     Active Substance: TOPIRAMATE
     Dosage: 75 MG, QD
     Route: 065
  7. HUMALOG [Suspect]
     Active Substance: INSULIN LISPRO
     Dosage: 14 IU, EACH EVENING
     Route: 058
     Dates: start: 201202

REACTIONS (1)
  - Diabetic ketoacidosis [Recovered/Resolved]
